FAERS Safety Report 9596941 (Version 2)
Quarter: 2014Q1

REPORT INFORMATION
  Report Type: Spontaneous
  Country: GB (occurrence: GB)
  Receive Date: 20131004
  Receipt Date: 20140207
  Transmission Date: 20141002
  Serious: Yes (Hospitalization)
  Sender: FDA-Public Use
  Company Number: GB-ACTAVIS-2013-17570

PATIENT
  Age: 85 Year
  Sex: Male

DRUGS (16)
  1. GABAPENTIN (UNKNOWN) [Suspect]
     Indication: POST HERPETIC NEURALGIA
     Dosage: 100 MG, TID
     Route: 048
     Dates: start: 20130812, end: 20130814
  2. GABAPENTIN (UNKNOWN) [Suspect]
     Dosage: 200 MG, TID
     Route: 048
     Dates: start: 20130815, end: 20130816
  3. GABAPENTIN (UNKNOWN) [Suspect]
     Dosage: 300 MG, TID
     Route: 048
     Dates: start: 20130816, end: 20130820
  4. GABAPENTIN (UNKNOWN) [Suspect]
     Dosage: 300 MG, BID
     Route: 048
     Dates: start: 20130821, end: 20130822
  5. GABAPENTIN (UNKNOWN) [Suspect]
     Dosage: 500 MG, DAILY; 200 MG IN THE MORNING AND 300 MG AT NIGHT
     Route: 048
     Dates: start: 20130823, end: 20130824
  6. GABAPENTIN (UNKNOWN) [Suspect]
     Dosage: 200 MG, BID
     Route: 048
     Dates: start: 20130825, end: 20130825
  7. GABAPENTIN (UNKNOWN) [Suspect]
     Dosage: 300 MG, DAILY; 100 MG IN THE MORNING, 200 MG AT NIGHT
     Route: 048
     Dates: start: 20130826, end: 20130826
  8. GABAPENTIN (UNKNOWN) [Suspect]
     Dosage: 100 MG, BID
     Route: 048
     Dates: start: 20130827, end: 20130827
  9. GABAPENTIN (UNKNOWN) [Suspect]
     Dosage: 100 MG, DAILY
     Route: 048
     Dates: start: 20130828, end: 20130829
  10. WARFARIN [Concomitant]
     Indication: PRODUCT USED FOR UNKNOWN INDICATION
     Dosage: UNK
     Route: 065
  11. SPIRONOLACTONE [Concomitant]
     Indication: PRODUCT USED FOR UNKNOWN INDICATION
     Dosage: UNK
     Route: 065
  12. CANDESARTAN [Concomitant]
     Indication: PRODUCT USED FOR UNKNOWN INDICATION
     Dosage: UNK
     Route: 065
  13. FENOFIBRATE [Concomitant]
     Indication: PRODUCT USED FOR UNKNOWN INDICATION
     Dosage: UNK
     Route: 065
  14. BISOPROLOL [Concomitant]
     Indication: PRODUCT USED FOR UNKNOWN INDICATION
     Dosage: 5 MG, DAILY; IN THE MORNING
     Route: 065
  15. CO-CODAMOL [Concomitant]
     Indication: PRODUCT USED FOR UNKNOWN INDICATION
     Dosage: 1 DF, QID; 30/500 MG. NEW
     Route: 065
  16. PERHEXILINE [Concomitant]
     Indication: PRODUCT USED FOR UNKNOWN INDICATION
     Dosage: 250 MG, DAILY; 100 MG IN THE MORNING, 150 MG IN THE EVENING. CLINICAL TRIAL
     Route: 048

REACTIONS (4)
  - Hallucination, visual [Not Recovered/Not Resolved]
  - Confusional state [Not Recovered/Not Resolved]
  - Tremor [Not Recovered/Not Resolved]
  - Fall [Not Recovered/Not Resolved]
